FAERS Safety Report 6573462-1 (Version None)
Quarter: 2010Q1

REPORT INFORMATION
  Report Type: 
  Country: None (occurrence: None)
  Receive Date: 20100208
  Receipt Date: 20100201
  Transmission Date: 20100710
  Serious: Yes (Other)
  Sender: FDA-Public Use
  Company Number: US-WYE-H13296510

PATIENT
  Sex: Female
  Weight: 111.23 kg

DRUGS (6)
  1. EFFEXOR XR [Suspect]
     Indication: DEPRESSION
     Route: 048
     Dates: start: 19970101, end: 20040101
  2. EFFEXOR XR [Suspect]
     Route: 048
     Dates: start: 20040101, end: 20100102
  3. LIPITOR [Concomitant]
     Indication: HYPERCHOLESTEROLAEMIA
     Dosage: 40 MG, FREQUENCY NOT SPECIFIED
  4. PLAVIX [Concomitant]
     Indication: ROAD TRAFFIC ACCIDENT
     Dosage: UNKNOWN
  5. ATENOLOL [Concomitant]
     Indication: HYPERTENSION
     Dosage: UNKNOWN
  6. HYDROCHLOROTHIAZIDE [Concomitant]
     Dosage: UNKNOWN

REACTIONS (16)
  - DEPRESSIVE SYMPTOM [None]
  - DIZZINESS [None]
  - DRUG WITHDRAWAL SYNDROME [None]
  - DYSPEPSIA [None]
  - EATING DISORDER [None]
  - FEELING ABNORMAL [None]
  - FEELINGS OF WORTHLESSNESS [None]
  - HEAD DISCOMFORT [None]
  - HEADACHE [None]
  - HUNGER [None]
  - HYPERSOMNIA [None]
  - INSOMNIA [None]
  - SENSATION OF FOREIGN BODY [None]
  - SUICIDAL IDEATION [None]
  - TINNITUS [None]
  - WEIGHT INCREASED [None]
